FAERS Safety Report 24961019 (Version 2)
Quarter: 2025Q1

REPORT INFORMATION
  Report Type: Spontaneous
  Country: KR (occurrence: KR)
  Receive Date: 20250212
  Receipt Date: 20250225
  Transmission Date: 20250409
  Serious: Yes (Other)
  Sender: MYLAN
  Company Number: KR-MYLANLABS-2025M1012700

PATIENT
  Sex: Female

DRUGS (3)
  1. NORVASC [Suspect]
     Active Substance: AMLODIPINE BESYLATE
     Indication: Blood pressure abnormal
     Dosage: 2.5 MILLIGRAM, QD (2.5 MG/DAY, HALF A 5MG TABLET DAILY)
     Dates: start: 20241105, end: 20241223
  2. NORVASC [Suspect]
     Active Substance: AMLODIPINE BESYLATE
     Dosage: 5 MILLIGRAM, QD (5 MG/DAY)
     Dates: end: 20250109
  3. DIOVAN [Concomitant]
     Active Substance: VALSARTAN

REACTIONS (8)
  - Angioedema [Unknown]
  - Bursitis [Recovering/Resolving]
  - Cyst [Recovering/Resolving]
  - Contusion [Recovered/Resolved]
  - Petechiae [Unknown]
  - Hepatic enzyme increased [Recovered/Resolved]
  - Joint swelling [Unknown]
  - Wrong technique in product usage process [Unknown]

NARRATIVE: CASE EVENT DATE: 20241105
